FAERS Safety Report 14418679 (Version 1)
Quarter: 2018Q1

REPORT INFORMATION
  Report Type: Spontaneous
  Country: US (occurrence: US)
  Receive Date: 20180122
  Receipt Date: 20180122
  Transmission Date: 20180509
  Serious: No
  Sender: FDA-Public Use
  Company Number: US-TEVA-737715ACC

PATIENT
  Sex: Female

DRUGS (4)
  1. SILDENAFIL. [Suspect]
     Active Substance: SILDENAFIL
     Dosage: 8 DOSAGE FORMS DAILY; NEW DOSAGE
  2. VITAMIN D [Concomitant]
     Active Substance: CHOLECALCIFEROL
  3. SILDENAFIL. [Suspect]
     Active Substance: SILDENAFIL
     Indication: PULMONARY HYPERTENSION
     Dosage: 240 MILLIGRAM DAILY; TAKES THE FULL 12 TABLETS
     Route: 048
     Dates: start: 2010
  4. IRON [Concomitant]
     Active Substance: IRON

REACTIONS (1)
  - Headache [Unknown]

NARRATIVE: CASE EVENT DATE: 2016
